FAERS Safety Report 19690643 (Version 1)
Quarter: 2021Q3

REPORT INFORMATION
  Report Type: Spontaneous
  Country: US (occurrence: US)
  Receive Date: 20210812
  Receipt Date: 20210812
  Transmission Date: 20211014
  Serious: No
  Sender: FDA-Public Use
  Company Number: US-ASTRAZENECA-2021A629088

PATIENT
  Sex: Female

DRUGS (1)
  1. FASENRA [Suspect]
     Active Substance: BENRALIZUMAB
     Dosage: UNKNOWN
     Route: 058

REACTIONS (8)
  - Feeling cold [Unknown]
  - Dizziness [Unknown]
  - Abdominal discomfort [Unknown]
  - Chest discomfort [Unknown]
  - Diarrhoea [Unknown]
  - Blood pressure increased [Unknown]
  - Asthma [Unknown]
  - Asthenia [Unknown]
